FAERS Safety Report 17828097 (Version 1)
Quarter: 2020Q2

REPORT INFORMATION
  Report Type: Report from Study
  Country: US (occurrence: US)
  Receive Date: 20200527
  Receipt Date: 20200527
  Transmission Date: 20200714
  Serious: Yes (Death)
  Sender: FDA-Public Use
  Company Number: US-MYLANLABS-2020M1051656

PATIENT
  Age: 22 Year
  Sex: Female

DRUGS (2)
  1. CYCLOBENZAPRINE. [Suspect]
     Active Substance: CYCLOBENZAPRINE
     Indication: PAIN
     Route: 061
  2. KETAMINE [Suspect]
     Active Substance: KETAMINE
     Indication: PAIN
     Route: 061

REACTIONS (2)
  - Toxicity to various agents [Fatal]
  - Systemic toxicity [Fatal]
